FAERS Safety Report 23555281 (Version 1)
Quarter: 2024Q1

REPORT INFORMATION
  Report Type: Spontaneous
  Country: FR (occurrence: FR)
  Receive Date: 20240222
  Receipt Date: 20240222
  Transmission Date: 20240410
  Serious: Yes (Other)
  Sender: FDA-Public Use
  Company Number: None

PATIENT
  Age: 48 Year
  Sex: Female

DRUGS (3)
  1. ETHINYL ESTRADIOL\LEVONORGESTREL [Suspect]
     Active Substance: ETHINYL ESTRADIOL\LEVONORGESTREL
     Indication: Endometriosis
     Dosage: 1 DF, 1X/DAY
     Route: 048
     Dates: end: 2015
  2. NOMEGESTROL ACETATE [Suspect]
     Active Substance: NOMEGESTROL ACETATE
     Indication: Endometriosis
     Dosage: 1 DF, 1X/DAY
     Route: 048
     Dates: start: 2015, end: 2021
  3. COLPRONE [Suspect]
     Active Substance: MEDROGESTONE
     Indication: Endometriosis
     Dosage: 1 DF, 1X/DAY
     Route: 048
     Dates: start: 2021

REACTIONS (2)
  - Meningioma [Not Recovered/Not Resolved]
  - Off label use [Unknown]

NARRATIVE: CASE EVENT DATE: 20231001
